FAERS Safety Report 6335083-5 (Version None)
Quarter: 2009Q3

REPORT INFORMATION
  Report Type: 
  Country: None (occurrence: None)
  Receive Date: 20090831
  Receipt Date: 20090825
  Transmission Date: 20100115
  Serious: Yes (Hospitalization)
  Sender: FDA-Public Use
  Company Number: B0590039A

PATIENT
  Sex: Female

DRUGS (3)
  1. CLAMOXYL [Suspect]
     Route: 048
     Dates: start: 20090103, end: 20090103
  2. PULMICORT-100 [Suspect]
     Route: 055
     Dates: start: 20090103, end: 20090103
  3. BRICANYL [Suspect]
     Route: 055
     Dates: start: 20090103, end: 20090103

REACTIONS (2)
  - ANGIOEDEMA [None]
  - FEELING HOT [None]
